FAERS Safety Report 7583783-1 (Version None)
Quarter: 2011Q2

REPORT INFORMATION
  Report Type: 
  Country: None (occurrence: None)
  Receive Date: 20110630
  Receipt Date: 20110623
  Transmission Date: 20111010
  Serious: Yes (Hospitalization, Other)
  Sender: FDA-Public Use
  Company Number: US-ROCHE-785728

PATIENT
  Sex: Female

DRUGS (1)
  1. BONIVA [Suspect]
     Indication: OSTEOPENIA
     Dosage: DOSEFORM, ROUTE AND FREQUENCY NOT REPORTED
     Route: 065

REACTIONS (7)
  - LOOSE BODY IN JOINT [None]
  - ARTHROSCOPY [None]
  - ARTHRITIS [None]
  - ARTHRITIS BACTERIAL [None]
  - STAPHYLOCOCCAL INFECTION [None]
  - MALAISE [None]
  - MENISCUS LESION [None]
